FAERS Safety Report 8178020-3 (Version None)
Quarter: 2012Q1

REPORT INFORMATION
  Report Type: 
  Country: None (occurrence: None)
  Receive Date: 20120301
  Receipt Date: 20120223
  Transmission Date: 20120608
  Serious: Yes (Death)
  Sender: FDA-Public Use
  Company Number: US-CELGENEUS-163-21880-12022540

PATIENT
  Sex: Male

DRUGS (5)
  1. DEXAMETHASONE [Concomitant]
     Dosage: 40 MILLIGRAM
     Route: 048
     Dates: end: 20120212
  2. FLECAINIDE ACETATE [Concomitant]
     Route: 048
  3. REVLIMID [Suspect]
     Indication: MULTIPLE MYELOMA
     Dosage: 10 MILLIGRAM
     Route: 048
     Dates: start: 20100301, end: 20120201
  4. FINASTERIDE [Concomitant]
     Route: 048
  5. SLO-MAG [Concomitant]
     Indication: SUPPLEMENTATION THERAPY
     Route: 048

REACTIONS (1)
  - MULTIPLE MYELOMA [None]
